FAERS Safety Report 5600346-5 (Version None)
Quarter: 2007Q4

REPORT INFORMATION
  Report Type: 
  Country: None (occurrence: None)
  Receive Date: 20071227
  Receipt Date: 20061130
  Transmission Date: 20080405
  Serious: Yes (Hospitalization)
  Sender: FDA-Public Use
  Company Number: 2006S1000288

PATIENT
  Age: 80 Year
  Sex: Female

DRUGS (1)
  1. SORIATANE [Suspect]
     Indication: PITYRIASIS RUBRA PILARIS
     Dosage: 10 MG;QD;PO
     Route: 048
     Dates: start: 20061107, end: 20061126

REACTIONS (2)
  - BLISTER [None]
  - SKIN EXFOLIATION [None]
